FAERS Safety Report 18994034 (Version 1)
Quarter: 2021Q1

REPORT INFORMATION
  Report Type: Spontaneous
  Country: US (occurrence: US)
  Receive Date: 20210310
  Receipt Date: 20210310
  Transmission Date: 20210420
  Serious: No
  Sender: FDA-Public Use
  Company Number: US-BAUSCH-BL-2021-000389

PATIENT
  Sex: Male

DRUGS (1)
  1. NASALCROM [Suspect]
     Active Substance: CROMOLYN SODIUM
     Indication: HYPERSENSITIVITY
     Route: 065

REACTIONS (3)
  - Throat tightness [Unknown]
  - Product odour abnormal [Unknown]
  - Laryngospasm [Unknown]
